FAERS Safety Report 7370021-8 (Version None)
Quarter: 2011Q1

REPORT INFORMATION
  Report Type: 
  Country: None (occurrence: None)
  Receive Date: 20110323
  Receipt Date: 20110309
  Transmission Date: 20110831
  Serious: Yes (Hospitalization, Other)
  Sender: FDA-Public Use
  Company Number: PHEH2007US15651

PATIENT
  Sex: Female

DRUGS (48)
  1. PERIDEX [Concomitant]
  2. FOLIC ACID [Concomitant]
  3. FEMARA [Concomitant]
  4. METHOTREXATE [Concomitant]
  5. TUBERCULIN NOS [Concomitant]
  6. MEGACE [Concomitant]
  7. CHEMOTHERAPEUTICS NOS [Concomitant]
  8. ABRAXANE [Concomitant]
  9. PAXIL [Concomitant]
  10. DOXIL [Concomitant]
  11. ROCEPHIN [Concomitant]
     Dosage: 1 G, UNK
  12. DILAUDID [Concomitant]
     Dosage: UNK
  13. KENALOG [Concomitant]
  14. PREDNISONE [Concomitant]
  15. XELODA [Concomitant]
  16. METROGEL [Concomitant]
  17. FLAGYL [Concomitant]
     Dosage: UNK
  18. ARANESP [Concomitant]
     Dosage: UNK
  19. HALOTESTIN [Concomitant]
  20. CALCIUM [Concomitant]
  21. LOPRESSOR [Concomitant]
     Dosage: UNK
     Route: 048
  22. ZYVOX [Concomitant]
  23. NEUPOGEN [Concomitant]
     Dosage: UNK
  24. VITAMIN B6 [Concomitant]
  25. ASPIRIN [Concomitant]
  26. ZANTAC [Concomitant]
  27. FASLODEX [Concomitant]
  28. AROMASIN [Concomitant]
     Dosage: UNK
  29. DICODIN [Concomitant]
     Dosage: UNK
  30. NAVELBINE [Concomitant]
     Dosage: UNK
  31. TAXOTERE [Concomitant]
  32. NAVELBINE [Concomitant]
     Dosage: UNK
  33. DIGOXIN [Concomitant]
     Dosage: UNK
  34. ALOXI [Concomitant]
     Dosage: UNK
  35. ZOMETA [Suspect]
     Dosage: 4 MG/ MONTHLY
     Route: 042
     Dates: start: 20021105, end: 20041209
  36. CENTRUM [Concomitant]
  37. METOPROLOL [Concomitant]
  38. TAMOXIFEN CITRATE [Concomitant]
  39. CELEBREX [Concomitant]
  40. NEULASTA [Concomitant]
  41. ATIVAN [Concomitant]
     Dosage: UNK
  42. REMICADE [Concomitant]
  43. PLAQUENIL [Concomitant]
  44. VITAMIN D [Concomitant]
  45. CENTRUM SILVER [Concomitant]
  46. ZOFRAN [Concomitant]
     Dosage: 4 MG, PRN
     Route: 048
  47. AMPICILLIN [Concomitant]
     Dosage: UNK
  48. LASIX [Concomitant]
     Dosage: UNK
     Dates: start: 20070416

REACTIONS (81)
  - SEPTIC SHOCK [None]
  - TONGUE ULCERATION [None]
  - NAUSEA [None]
  - DEHYDRATION [None]
  - DECREASED APPETITE [None]
  - PYREXIA [None]
  - LEFT VENTRICULAR DYSFUNCTION [None]
  - FAILURE TO THRIVE [None]
  - MULTI-ORGAN FAILURE [None]
  - PULMONARY MASS [None]
  - PLEURAL EFFUSION [None]
  - ATRIAL FIBRILLATION [None]
  - OSTEONECROSIS OF JAW [None]
  - PHYSICAL DISABILITY [None]
  - DEFORMITY [None]
  - GAIT DISTURBANCE [None]
  - WALKING AID USER [None]
  - OEDEMA PERIPHERAL [None]
  - ONYCHOMYCOSIS [None]
  - ACTINIC KERATOSIS [None]
  - EJECTION FRACTION DECREASED [None]
  - DYSPHAGIA [None]
  - HYPERTENSION [None]
  - SEPSIS [None]
  - CARDIAC FAILURE CONGESTIVE [None]
  - PAIN [None]
  - ANXIETY [None]
  - DERMAL CYST [None]
  - CHILLS [None]
  - LOCALISED OEDEMA [None]
  - BODY HEIGHT DECREASED [None]
  - CHRONIC OBSTRUCTIVE PULMONARY DISEASE [None]
  - SPINAL COLUMN STENOSIS [None]
  - ANAEMIA [None]
  - HYPERMETABOLISM [None]
  - HYDRONEPHROSIS [None]
  - HYPOTENSION [None]
  - ECCHYMOSIS [None]
  - AORTIC VALVE INCOMPETENCE [None]
  - CARDIOMYOPATHY [None]
  - BLEPHARITIS [None]
  - RENAL FAILURE ACUTE [None]
  - EMOTIONAL DISTRESS [None]
  - KYPHOSIS [None]
  - DYSURIA [None]
  - FATIGUE [None]
  - MACROCYTOSIS [None]
  - RESPIRATORY FAILURE [None]
  - ATELECTASIS [None]
  - SINGLE FUNCTIONAL KIDNEY [None]
  - MEDICAL DEVICE COMPLICATION [None]
  - OSTEOPOROSIS [None]
  - METASTASES TO BONE [None]
  - NEPHROLITHIASIS [None]
  - OSTEOMYELITIS [None]
  - MYELODYSPLASTIC SYNDROME [None]
  - NODAL OSTEOARTHRITIS [None]
  - BONE LESION [None]
  - PELVI-URETERIC OBSTRUCTION [None]
  - DIARRHOEA [None]
  - URINARY TRACT INFECTION ENTEROCOCCAL [None]
  - BLOOD CREATININE INCREASED [None]
  - MITRAL VALVE INCOMPETENCE [None]
  - BACTERAEMIA [None]
  - METASTASES TO SPINE [None]
  - HEPATIC NEOPLASM MALIGNANT [None]
  - APPENDICITIS [None]
  - PNEUMONIA [None]
  - INFECTION [None]
  - BACK PAIN [None]
  - BREAST PROSTHESIS USER [None]
  - HORDEOLUM [None]
  - BONE DISORDER [None]
  - APPENDICITIS PERFORATED [None]
  - BONE MARROW OEDEMA [None]
  - HYPERKALAEMIA [None]
  - HYPOACUSIS [None]
  - VENTRICULAR HYPERTROPHY [None]
  - SPINAL COMPRESSION FRACTURE [None]
  - SPINAL OSTEOARTHRITIS [None]
  - THROMBOCYTOPENIA [None]
